FAERS Safety Report 10137057 (Version 1)
Quarter: 2014Q2

REPORT INFORMATION
  Report Type: Spontaneous
  Country: US (occurrence: None)
  Receive Date: 20140428
  Receipt Date: 20140428
  Transmission Date: 20141212
  Serious: Yes (Other)
  Sender: FDA-Public Use
  Company Number: None

PATIENT
  Age: 9 Year
  Sex: Male

DRUGS (4)
  1. SEROQUEL [Suspect]
     Indication: MOEBIUS II SYNDROME
     Dosage: 3 TID PO
     Route: 048
     Dates: start: 20100520
  2. SEROQUEL [Suspect]
     Indication: ENCEPHALOPATHY
     Dosage: 3 TID PO
     Route: 048
     Dates: start: 20100520
  3. SEROQUEL [Suspect]
     Indication: CEREBRAL PALSY
     Dosage: 3 TID PO
     Route: 048
     Dates: start: 20100520
  4. SEROQUEL [Suspect]
     Dosage: 1
     Route: 048

REACTIONS (5)
  - Agitation [None]
  - Dyskinesia [None]
  - Condition aggravated [None]
  - Rash macular [None]
  - Product substitution issue [None]
